FAERS Safety Report 9351418 (Version 2)
Quarter: 2013Q3

REPORT INFORMATION
  Report Type: Report from Study
  Country: US (occurrence: US)
  Receive Date: 20130617
  Receipt Date: 20130708
  Transmission Date: 20140515
  Serious: Yes (Hospitalization)
  Sender: FDA-Public Use
  Company Number: US-NAPPMUNDI-USA-2013-0103340

PATIENT
  Age: 49 Year
  Sex: Female

DRUGS (1)
  1. OXYCONTIN (NDA 22-272) [Suspect]
     Indication: FIBROMYALGIA
     Dosage: 60 MG, 2 TABLETS IN THE MORNING AND 1 TABLET IN THE EVENING
     Route: 048
     Dates: start: 201305

REACTIONS (4)
  - Pneumonia [Recovered/Resolved]
  - Anaemia [Unknown]
  - Asthma [Recovered/Resolved]
  - Bronchitis [Unknown]
